FAERS Safety Report 8906848 (Version 1)
Quarter: 2012Q4

REPORT INFORMATION
  Report Type: 
  Country: CO (occurrence: CO)
  Receive Date: 20121114
  Receipt Date: 20121114
  Transmission Date: 20130627
  Serious: Yes (Hospitalization)
  Sender: FDA-Public Use
  Company Number: CO-ELI_LILLY_AND_COMPANY-CO201211001670

PATIENT
  Age: 86 Year
  Sex: Female

DRUGS (8)
  1. FORTEO [Suspect]
     Indication: OSTEOPOROSIS
     Dosage: 20 ug, qd
     Route: 058
     Dates: start: 20121018
  2. LOVASTATIN [Concomitant]
  3. LOSARTAN [Concomitant]
  4. IMIPRAMINE [Concomitant]
  5. AMLODIPINE [Concomitant]
  6. METOPROLOL [Concomitant]
  7. CALCIUM + VITAMIN D [Concomitant]
     Indication: SUPPLEMENTATION THERAPY
  8. VITAMIN D [Concomitant]
     Indication: SUPPLEMENTATION THERAPY

REACTIONS (4)
  - Fall [Recovering/Resolving]
  - Head injury [Recovering/Resolving]
  - Contusion [Recovering/Resolving]
  - Diverticulitis [Recovering/Resolving]
